FAERS Safety Report 15440043 (Version 2)
Quarter: 2018Q4

REPORT INFORMATION
  Report Type: Spontaneous
  Country: US (occurrence: US)
  Receive Date: 20180928
  Receipt Date: 20181001
  Transmission Date: 20190204
  Serious: No
  Sender: FDA-Public Use
  Company Number: US-PFIZER INC-2018388916

PATIENT
  Age: 10 Year
  Sex: Male
  Weight: 34.93 kg

DRUGS (5)
  1. QUILLIVANT XR [Suspect]
     Active Substance: METHYLPHENIDATE HYDROCHLORIDE
     Indication: ATTENTION DEFICIT/HYPERACTIVITY DISORDER
     Dosage: 6 ML, 1X/DAY (DRAWN UP IN A SYRINGE) IN THE MORNING FROM MONDAY TO FRIDAY
     Route: 048
     Dates: start: 2015
  2. CYPROHEPTADINE. [Concomitant]
     Active Substance: CYPROHEPTADINE
     Indication: DECREASED APPETITE
     Dosage: 4 MG, 2X/DAY (IN THE MORNING AND IN THE AFTERNOON) FROM MONDAY TO FRIDAY
     Route: 048
     Dates: start: 2017
  3. QUILLIVANT XR [Suspect]
     Active Substance: METHYLPHENIDATE HYDROCHLORIDE
     Dosage: 6 ML, 1X/DAY
     Route: 048
     Dates: start: 201808, end: 2018
  4. QUILLIVANT XR [Suspect]
     Active Substance: METHYLPHENIDATE HYDROCHLORIDE
     Dosage: 6.5 ML, 1X/DAY
     Route: 048
     Dates: start: 2018, end: 2018
  5. QUILLIVANT XR [Suspect]
     Active Substance: METHYLPHENIDATE HYDROCHLORIDE
     Dosage: 7 ML, DAILY FROM MONDAY TO FRIDAY
     Route: 048
     Dates: start: 201808, end: 20180918

REACTIONS (9)
  - Abnormal behaviour [Recovering/Resolving]
  - Anxiety [Unknown]
  - Drug ineffective [Unknown]
  - Feeling abnormal [Recovering/Resolving]
  - Educational problem [Recovering/Resolving]
  - Mood altered [Recovered/Resolved]
  - Appetite disorder [Recovered/Resolved]
  - Irritability [Recovering/Resolving]
  - Decreased appetite [Unknown]

NARRATIVE: CASE EVENT DATE: 201808
